FAERS Safety Report 4862604-1 (Version None)
Quarter: 2005Q4

REPORT INFORMATION
  Report Type: 
  Country: None (occurrence: None)
  Receive Date: 20051221
  Receipt Date: 20051206
  Transmission Date: 20060501
  Serious: Yes (Other)
  Sender: FDA-Public Use
  Company Number: CA-ROCHE-427751

PATIENT
  Age: 54 Year
  Sex: Female
  Weight: 53 kg

DRUGS (9)
  1. XENICAL [Suspect]
     Indication: WEIGHT CONTROL
     Route: 048
     Dates: start: 20050606
  2. XENICAL [Suspect]
     Route: 048
     Dates: start: 20051116, end: 20051207
  3. LIPITOR [Concomitant]
     Route: 048
  4. WELLBUTRIN [Concomitant]
     Route: 048
  5. ESTROGEN [Concomitant]
     Dosage: TAKEN DAILY
     Route: 061
  6. PROMETRIUM [Concomitant]
     Dosage: TAKEN DAILY
     Route: 048
     Dates: start: 20050921
  7. MULTI-VITAMIN [Concomitant]
     Dosage: TAKEN DAILY
     Route: 048
     Dates: start: 20050921
  8. FLOVENT [Concomitant]
     Route: 055
  9. VENTOLIN [Concomitant]
     Route: 055

REACTIONS (2)
  - ABDOMINAL PAIN UPPER [None]
  - ERUCTATION [None]
